FAERS Safety Report 21848323 (Version 2)
Quarter: 2023Q1

REPORT INFORMATION
  Report Type: Spontaneous
  Country: LB (occurrence: LB)
  Receive Date: 20230111
  Receipt Date: 20230113
  Transmission Date: 20230417
  Serious: Yes (Other)
  Sender: FDA-Public Use
  Company Number: LB-PFM-2023-00065

PATIENT

DRUGS (1)
  1. HEMANGEOL [Suspect]
     Active Substance: PROPRANOLOL HYDROCHLORIDE
     Indication: Infantile haemangioma
     Dosage: UNK
     Route: 065

REACTIONS (4)
  - Ulcerated haemangioma [Recovered/Resolved]
  - COVID-19 [Recovered/Resolved]
  - Product use issue [Unknown]
  - Off label use [Unknown]
